FAERS Safety Report 8505857-0 (Version None)
Quarter: 2012Q3

REPORT INFORMATION
  Report Type: 
  Country: None (occurrence: None)
  Receive Date: 20120702
  Receipt Date: 20120606
  Transmission Date: 20120928
  Serious: Yes (Other)
  Sender: FDA-Public Use
  Company Number: A0982520A

PATIENT
  Sex: Male

DRUGS (1)
  1. METHYLCELLULOSE (FORMULATION UNKNOWN) [Suspect]
     Dosage: ORAL
     Route: 048

REACTIONS (2)
  - PRURITUS [None]
  - RECTAL HAEMORRHAGE [None]
